FAERS Safety Report 8589415-8 (Version None)
Quarter: 2012Q3

REPORT INFORMATION
  Report Type: 
  Country: None (occurrence: None)
  Receive Date: 20120731
  Receipt Date: 20120717
  Transmission Date: 20120928
  Serious: Yes (Other)
  Sender: FDA-Public Use
  Company Number: 2012MA009039

PATIENT
  Age: 75 Year
  Sex: Female

DRUGS (2)
  1. DILTIAZEM HCL [Suspect]
     Indication: ANGINA PECTORIS
     Dosage: PO
     Route: 048
     Dates: start: 20020101, end: 20120416
  2. ATENOLOL [Concomitant]

REACTIONS (1)
  - WEIGHT INCREASED [None]
